FAERS Safety Report 19569926 (Version 1)
Quarter: 2021Q3

REPORT INFORMATION
  Report Type: Report from Study
  Country: BR (occurrence: BR)
  Receive Date: 20210716
  Receipt Date: 20210716
  Transmission Date: 20211014
  Serious: Yes (Other)
  Sender: FDA-Public Use
  Company Number: BR-UCBSA-2021033739

PATIENT

DRUGS (9)
  1. BLINDED LEVETIRACETAM [Suspect]
     Active Substance: LEVETIRACETAM
     Indication: PARTIAL SEIZURES
     Dosage: 1000 MILLIGRAM/ DAY
  2. PLACEBO [Suspect]
     Active Substance: UNSPECIFIED INGREDIENT
     Indication: PARTIAL SEIZURES
     Dosage: 1000 MILLIGRAM/ DAY
  3. BLINDED LEVETIRACETAM [Suspect]
     Active Substance: LEVETIRACETAM
     Dosage: 3000 MILLIGRAM/ DAY
  4. PLACEBO [Suspect]
     Active Substance: UNSPECIFIED INGREDIENT
     Dosage: 3000 MILLIGRAM/ DAY
  5. BLINDED LEVETIRACETAM [Suspect]
     Active Substance: LEVETIRACETAM
     Indication: PARTIAL SEIZURES
     Dosage: 1000 MILLIGRAM/ DAY
  6. BLINDED LEVETIRACETAM [Suspect]
     Active Substance: LEVETIRACETAM
     Dosage: 2000 MILLIGRAM/ DAY
  7. BLINDED LEVETIRACETAM [Suspect]
     Active Substance: LEVETIRACETAM
     Dosage: 3000 MILLIGRAM/ DAY
  8. BLINDED LEVETIRACETAM [Suspect]
     Active Substance: LEVETIRACETAM
     Dosage: 2000 MILLIGRAM/ DAY
  9. PLACEBO [Suspect]
     Active Substance: UNSPECIFIED INGREDIENT
     Dosage: 2000 MILLIGRAM/ DAY

REACTIONS (13)
  - Eye disorder [Unknown]
  - Cutaneous symptom [Unknown]
  - Respiratory disorder [Unknown]
  - Abdominal discomfort [Unknown]
  - Administration site reaction [Unknown]
  - Angiopathy [Unknown]
  - Nervous system disorder [Unknown]
  - Mental disorder [Unknown]
  - Infection [Unknown]
  - Musculoskeletal disorder [Unknown]
  - Ear disorder [Unknown]
  - Metabolic disorder [Unknown]
  - Injury [Unknown]
